FAERS Safety Report 15549070 (Version 2)
Quarter: 2018Q4

REPORT INFORMATION
  Report Type: Report from Study
  Country: US (occurrence: US)
  Receive Date: 20181025
  Receipt Date: 20181026
  Transmission Date: 20190205
  Serious: No
  Sender: FDA-Public Use
  Company Number: US-ROCHE-2202817

PATIENT
  Sex: Male

DRUGS (2)
  1. OCREVUS [Suspect]
     Active Substance: OCRELIZUMAB
     Indication: RELAPSING MULTIPLE SCLEROSIS
     Dosage: DAY1 AND DAY 15 THEN 600 MG EVERY SIX MONTHS
     Route: 042
     Dates: start: 20180302
  2. OCREVUS [Suspect]
     Active Substance: OCRELIZUMAB
     Dosage: 1ST 1/2 DOSE 20-APR-2018; 2ND 1/2 DOSE 04-MAY-2018 ;ONGOING: UNKNOWN
     Route: 065
     Dates: start: 20180420

REACTIONS (1)
  - Sinusitis [Unknown]
